FAERS Safety Report 18341617 (Version 2)
Quarter: 2020Q4

REPORT INFORMATION
  Report Type: Spontaneous
  Country: CA (occurrence: CA)
  Receive Date: 20201004
  Receipt Date: 20201113
  Transmission Date: 20210113
  Serious: Yes (Other)
  Sender: FDA-Public Use
  Company Number: CA-CELLTRION INC.-2018CA023602

PATIENT

DRUGS (20)
  1. INFLECTRA [Suspect]
     Active Substance: INFLIXIMAB-DYYB
     Dosage: 5 MG/KG, AS PER WEIGHT AT INFUSION/Q 0, 2, 8 WEEKS, THEN EVERY 6 WEEKS
     Route: 042
     Dates: start: 20180709, end: 20190723
  2. INFLECTRA [Suspect]
     Active Substance: INFLIXIMAB-DYYB
     Dosage: 5MG/KG, AS PER WEIGHT AT INFUSION/Q 0, 2, 6 WEEKS, THEN EVERY 6 WEEKS
     Route: 042
     Dates: start: 20190919
  3. INFLECTRA [Suspect]
     Active Substance: INFLIXIMAB-DYYB
     Dosage: 10 MG/KG, EVERY 6 WEEKS
     Route: 042
     Dates: start: 20200310, end: 20200310
  4. INFLECTRA [Suspect]
     Active Substance: INFLIXIMAB-DYYB
     Dosage: 10 MG/KG DOSE NOW (RESCUE), THEN EVERY 4 WEEKS
     Route: 042
     Dates: start: 20200416
  5. INFLECTRA [Suspect]
     Active Substance: INFLIXIMAB-DYYB
     Dosage: 5 MG/KG, AS PER WEIGHT AT INFUSION (0, 2, 6 WEEKS, THEN EVERY 8 WEEKS)
     Route: 042
     Dates: start: 20181016
  6. INFLECTRA [Suspect]
     Active Substance: INFLIXIMAB-DYYB
     Dosage: 5MG/KG, AS PER WEIGHT AT INFUSION/Q 0, 2, 6 WEEKS, THEN EVERY 6 WEEKS
     Route: 042
     Dates: start: 20191003
  7. INFLECTRA [Suspect]
     Active Substance: INFLIXIMAB-DYYB
     Dosage: 10 MG/KG DOSE NOW (RESCUE), THEN EVERY 4 WEEKS
     Route: 042
     Dates: start: 20200806
  8. INFLECTRA [Suspect]
     Active Substance: INFLIXIMAB-DYYB
     Dosage: 10 MG/KG DOSE NOW (RESCUE), THEN EVERY 4 WEEKS
     Route: 042
     Dates: start: 20200903, end: 20200903
  9. INFLECTRA [Suspect]
     Active Substance: INFLIXIMAB-DYYB
     Dosage: 5MG/KG, AS PER WEIGHT AT INFUSION/Q 0, 2, 6 WEEKS, THEN EVERY 6 WEEKS
     Route: 042
     Dates: start: 20200123
  10. ACETAMINOPHEN. [Concomitant]
     Active Substance: ACETAMINOPHEN
     Indication: PREMEDICATION
     Dosage: 650 MG
     Route: 048
     Dates: start: 20200903, end: 20200903
  11. INFLECTRA [Suspect]
     Active Substance: INFLIXIMAB-DYYB
     Dosage: 5 MG/KG, AS PER WEIGHT AT INFUSION (0, 2, 6 WEEKS, THEN EVERY 8 WEEKS)
     Route: 042
     Dates: start: 20190204
  12. INFLECTRA [Suspect]
     Active Substance: INFLIXIMAB-DYYB
     Dosage: 10 MG/KG DOSE NOW (RESCUE), THEN EVERY 4 WEEKS
     Route: 042
     Dates: start: 20200806
  13. INFLECTRA [Suspect]
     Active Substance: INFLIXIMAB-DYYB
     Dosage: 10 MG/KG DOSE NOW (RESCUE), THEN EVERY 4 WEEKS
     Route: 042
     Dates: start: 20200903, end: 20200903
  14. DIPHENHYDRAMINE. [Concomitant]
     Active Substance: DIPHENHYDRAMINE
     Indication: PREMEDICATION
     Dosage: 50 MG
     Route: 048
     Dates: start: 20200903, end: 20200903
  15. INFLECTRA [Suspect]
     Active Substance: INFLIXIMAB-DYYB
     Dosage: 5 MG/KG, AS PER WEIGHT AT INFUSION (0, 2, 6 WEEKS, THEN EVERY 8 WEEKS)
     Route: 042
     Dates: start: 20190402
  16. INFLECTRA [Suspect]
     Active Substance: INFLIXIMAB-DYYB
     Dosage: 10 MG/KG DOSE NOW (RESCUE), THEN EVERY 4 WEEKS
     Route: 042
     Dates: start: 20200806
  17. INFLECTRA [Suspect]
     Active Substance: INFLIXIMAB-DYYB
     Dosage: 10 MG/KG DOSE NOW (RESCUE), THEN EVERY 4 WEEKS
     Route: 042
     Dates: start: 20200903, end: 20200903
  18. INFLECTRA [Suspect]
     Active Substance: INFLIXIMAB-DYYB
     Indication: CROHN^S DISEASE
     Dosage: 407 MG WEEKS 0, 2, 6, AND Q 8 WEEKS THEREAFTER(5 MG/KG AT Q 0, 2, 6 WEEKS, THEN EVERY 8 WEEKS)
     Route: 042
     Dates: start: 20180709
  19. INFLECTRA [Suspect]
     Active Substance: INFLIXIMAB-DYYB
     Dosage: 5MG/KG, AS PER WEIGHT AT INFUSION/Q 0, 2, 6 WEEKS, THEN EVERY 6 WEEKS
     Route: 042
     Dates: start: 20191031
  20. INFLECTRA [Suspect]
     Active Substance: INFLIXIMAB-DYYB
     Dosage: 10 MG/KG DOSE NOW (RESCUE), THEN EVERY 4 WEEKS
     Route: 042
     Dates: start: 20200710

REACTIONS (11)
  - Feeling hot [Unknown]
  - Skin disorder [Unknown]
  - Erythema [Unknown]
  - Pruritus [Unknown]
  - Scab [Unknown]
  - Feeling abnormal [Unknown]
  - Off label use [Unknown]
  - Rash [Unknown]
  - Lupus-like syndrome [Unknown]
  - Migraine [Unknown]
  - Drug ineffective [Unknown]

NARRATIVE: CASE EVENT DATE: 20190919
